FAERS Safety Report 5254467-X (Version None)
Quarter: 2007Q1

REPORT INFORMATION
  Report Type: 
  Country: None (occurrence: None)
  Receive Date: 20061201
  Receipt Date: 20060905
  Transmission Date: 20070707
  Serious: No
  Sender: FDA-Public Use
  Company Number: 2006PV020740

PATIENT
  Age: 66 Year
  Sex: Female
  Weight: 117.4816 kg

DRUGS (8)
  1. BYETTA [Suspect]
     Indication: DIABETES MELLITUS NON-INSULIN-DEPENDENT
     Dosage: 5 MCG;BID;SC
     Route: 058
     Dates: start: 20060814
  2. NOVOLOG [Suspect]
     Indication: DIABETES MELLITUS NON-INSULIN-DEPENDENT
     Dosage: TID
     Dates: start: 20060101
  3. LANTUS [Suspect]
     Indication: DIABETES MELLITUS NON-INSULIN-DEPENDENT
     Dosage: QD;SC
     Route: 058
     Dates: start: 20060101
  4. GLUCOVANCE [Concomitant]
  5. SOTALOL HYDROCHLORIDE [Concomitant]
  6. CARDIZEM [Concomitant]
  7. ISOSORBIDE [Concomitant]
  8. LISINOPRIL [Concomitant]

REACTIONS (4)
  - BLOOD GLUCOSE DECREASED [None]
  - ENERGY INCREASED [None]
  - PALPITATIONS [None]
  - WEIGHT DECREASED [None]
